FAERS Safety Report 5279977-0 (Version None)
Quarter: 2007Q1

REPORT INFORMATION
  Report Type: 
  Country: None (occurrence: None)
  Receive Date: 20070327
  Receipt Date: 20070327
  Transmission Date: 20070707
  Serious: Yes (Hospitalization)
  Sender: FDA-Public Use
  Company Number: None

PATIENT
  Sex: Male
  Weight: 100.2449 kg

DRUGS (1)
  1. ERBITUX [Suspect]
     Indication: LUNG NEOPLASM MALIGNANT
     Dosage: 540MG WEEKOLY IV DRIP
     Route: 041
     Dates: start: 20070219, end: 20070318

REACTIONS (3)
  - ARTERIOSCLEROSIS [None]
  - FAT EMBOLISM [None]
  - ISCHAEMIA [None]
